FAERS Safety Report 8416443-5 (Version None)
Quarter: 2012Q2

REPORT INFORMATION
  Report Type: 
  Country: None (occurrence: None)
  Receive Date: 20120606
  Receipt Date: 20120604
  Transmission Date: 20120825
  Serious: Yes (Hospitalization)
  Sender: FDA-Public Use
  Company Number: DE-ROCHE-1065460

PATIENT
  Age: 59 Year
  Sex: Female
  Weight: 58 kg

DRUGS (3)
  1. CARBOPLATIN [Suspect]
     Indication: OVARIAN CANCER
     Dosage: MOST RECENT DOSE ON 23/APR/2012
     Route: 042
     Dates: start: 20120423
  2. PACLITAXEL [Suspect]
     Indication: OVARIAN CANCER
     Dosage: MOST RECENT DOSE ON 23/APR/2012
     Route: 042
     Dates: start: 20120423
  3. AVASTIN [Suspect]
     Indication: OVARIAN CANCER
     Dosage: MOST RECENT DOSE ON 23/APR/2012
     Route: 042
     Dates: start: 20120423

REACTIONS (1)
  - URINARY RETENTION [None]
